FAERS Safety Report 7035226-4 (Version None)
Quarter: 2010Q4

REPORT INFORMATION
  Report Type: 
  Country: None (occurrence: None)
  Receive Date: 20101008
  Receipt Date: 20100929
  Transmission Date: 20110411
  Serious: Yes (Death, Hospitalization, Other)
  Sender: FDA-Public Use
  Company Number: ES-CELGENEUS-144-50794-10092864

PATIENT
  Age: 64 Year
  Sex: Male

DRUGS (2)
  1. VIDAZA [Suspect]
     Route: 051
     Dates: start: 20090216, end: 20090612
  2. ONDASETRON [Concomitant]
     Route: 065

REACTIONS (2)
  - PANCYTOPENIA [None]
  - SEPTIC SHOCK [None]
